FAERS Safety Report 25802843 (Version 1)
Quarter: 2025Q3

REPORT INFORMATION
  Report Type: Spontaneous
  Country: US (occurrence: None)
  Receive Date: 20250914
  Receipt Date: 20250914
  Transmission Date: 20251020
  Serious: Yes (Life-Threatening, Other)
  Sender: FDA-CTU
  Company Number: None

PATIENT
  Age: 56 Year
  Sex: Male
  Weight: 112.05 kg

DRUGS (14)
  1. SPIRIVA RESPIMAT [Suspect]
     Active Substance: TIOTROPIUM BROMIDE
     Indication: Chronic obstructive pulmonary disease
     Dosage: OTHER STRENGTH : MCG;?OTHER QUANTITY : 2 PUFF(S);?FREQUENCY : DAILY;?
     Route: 055
     Dates: start: 20250825, end: 20250829
  2. LOSARTAN [Concomitant]
     Active Substance: LOSARTAN
  3. NIFEDIPINE [Concomitant]
     Active Substance: NIFEDIPINE
  4. METOPROLOL [Concomitant]
     Active Substance: METOPROLOL
  5. MONTELUKAST [Concomitant]
     Active Substance: MONTELUKAST
  6. CLONIDINE [Concomitant]
     Active Substance: CLONIDINE
  7. POTASSIUM [Concomitant]
     Active Substance: POTASSIUM
  8. ATORVASTATIN [Concomitant]
     Active Substance: ATORVASTATIN
  9. WIXELA INHUB [Concomitant]
     Active Substance: FLUTICASONE PROPIONATE\SALMETEROL XINAFOATE
  10. ALBUTEROL SULFATE [Concomitant]
     Active Substance: ALBUTEROL SULFATE
  11. MOMETASONE FUROATE [Concomitant]
     Active Substance: MOMETASONE FUROATE
  12. IPRATROPIUM BROMIDE [Concomitant]
     Active Substance: IPRATROPIUM BROMIDE
  13. albuterol sulfate inhale solution [Concomitant]
  14. Walgreens nasal spray [Concomitant]

REACTIONS (5)
  - Dyspnoea [None]
  - Urticaria [None]
  - Rash [None]
  - Vision blurred [None]
  - Dysuria [None]

NARRATIVE: CASE EVENT DATE: 20250829
